FAERS Safety Report 25155173 (Version 2)
Quarter: 2025Q2

REPORT INFORMATION
  Report Type: Spontaneous
  Country: BR (occurrence: BR)
  Receive Date: 20250403
  Receipt Date: 20250627
  Transmission Date: 20250716
  Serious: No
  Sender: ANI
  Company Number: BR-ANIPHARMA-022261

PATIENT
  Sex: Male

DRUGS (1)
  1. FLUVOXAMINE MALEATE [Suspect]
     Active Substance: FLUVOXAMINE MALEATE
     Indication: Product used for unknown indication

REACTIONS (5)
  - Product packaging quantity issue [Unknown]
  - Product use issue [Unknown]
  - Illness [Unknown]
  - Overdose [Unknown]
  - Headache [Unknown]
